FAERS Safety Report 19435732 (Version 1)
Quarter: 2021Q2

REPORT INFORMATION
  Report Type: Report from Study
  Country: DE (occurrence: DE)
  Receive Date: 20210618
  Receipt Date: 20210618
  Transmission Date: 20210717
  Serious: Yes (Other)
  Sender: FDA-Public Use
  Company Number: NVSC2021DE129720

PATIENT

DRUGS (1)
  1. METFORMIN [Suspect]
     Active Substance: METFORMIN HYDROCHLORIDE
     Indication: PRODUCT USED FOR UNKNOWN INDICATION
     Dosage: UNK
     Route: 065

REACTIONS (11)
  - Blood cholesterol increased [Unknown]
  - Weight increased [Unknown]
  - Depression [Unknown]
  - Blood triglycerides increased [Unknown]
  - Blood glucose fluctuation [Unknown]
  - Neoplasm malignant [Unknown]
  - Blood glucose abnormal [Unknown]
  - Hypoglycaemia [Unknown]
  - Arthralgia [Unknown]
  - Anxiety [Unknown]
  - Lipids abnormal [Unknown]
